FAERS Safety Report 6596121-8 (Version None)
Quarter: 2010Q1

REPORT INFORMATION
  Report Type: 
  Country: None (occurrence: None)
  Receive Date: 20100223
  Receipt Date: 20100219
  Transmission Date: 20100710
  Serious: Yes (Death)
  Sender: FDA-Public Use
  Company Number: JP-SANOFI-AVENTIS-2010SA002396

PATIENT
  Age: 76 Year
  Sex: Male

DRUGS (2)
  1. TAXOTERE [Suspect]
     Indication: PROSTATE CANCER
     Route: 041
     Dates: start: 20091201, end: 20091201
  2. PREDNISOLONE [Concomitant]
     Route: 065
     Dates: start: 20091101

REACTIONS (1)
  - INTERSTITIAL LUNG DISEASE [None]
